FAERS Safety Report 4480618-0 (Version None)
Quarter: 2004Q4

REPORT INFORMATION
  Report Type: 
  Country: None (occurrence: None)
  Receive Date: 20041019
  Receipt Date: 20041006
  Transmission Date: 20050328
  Serious: Yes (Hospitalization)
  Sender: FDA-Public Use
  Company Number: 2004067461

PATIENT
  Age: 62 Year
  Sex: Female

DRUGS (5)
  1. LIPITOR [Suspect]
     Indication: DYSLIPIDAEMIA
     Dosage: 10 MG (10 MG, 1 IN 1 D), ORAL
     Route: 048
     Dates: start: 20030901, end: 20031201
  2. AZATHIOPRINE [Concomitant]
  3. URSODEOXYCHOLIC ACID (UROSDEOXYCHOLIC ACID) [Concomitant]
  4. PREDNISONE [Concomitant]
  5. CORTISONE (CORTISONE) [Concomitant]

REACTIONS (10)
  - AUTOIMMUNE HEPATITIS [None]
  - BLOOD CREATININE ABNORMAL [None]
  - CHOLELITHIASIS [None]
  - CHROMATURIA [None]
  - FAECES PALE [None]
  - HEPATOMEGALY [None]
  - MALAISE [None]
  - PAIN [None]
  - PERIPHERAL VASCULAR DISORDER [None]
  - VOMITING [None]
